FAERS Safety Report 11750422 (Version 2)
Quarter: 2015Q4

REPORT INFORMATION
  Report Type: Spontaneous
  Country: US (occurrence: US)
  Receive Date: 20151118
  Receipt Date: 20151124
  Transmission Date: 20160304
  Serious: No
  Sender: FDA-Public Use
  Company Number: US-TAKEDA-2015TUS016016

PATIENT
  Age: 19 Year
  Sex: Male
  Weight: 45.35 kg

DRUGS (9)
  1. ENTYVIO [Suspect]
     Active Substance: VEDOLIZUMAB
     Indication: CROHN^S DISEASE
     Dosage: 300 MG, UNK
     Route: 042
     Dates: start: 20150917, end: 20150917
  2. UCERIS [Concomitant]
     Active Substance: BUDESONIDE
     Indication: CROHN^S DISEASE
     Dosage: 9 MG, QD
     Route: 048
     Dates: start: 20150818
  3. IMODIUM A-D [Concomitant]
     Active Substance: LOPERAMIDE HYDROCHLORIDE
     Dosage: 2 MG, UNK
     Route: 048
  4. SCOPOLAMINE                        /00008701/ [Suspect]
     Active Substance: SCOPOLAMINE
     Indication: VOMITING
  5. PREDNISONE. [Concomitant]
     Active Substance: PREDNISONE
     Indication: CROHN^S DISEASE
     Dosage: UNK
  6. ZOFRAN [Concomitant]
     Active Substance: ONDANSETRON HYDROCHLORIDE
     Indication: NAUSEA
     Dosage: UNK
     Dates: start: 201509, end: 201509
  7. PREDNISONE. [Concomitant]
     Active Substance: PREDNISONE
     Dosage: 10 MG, QD
     Route: 048
     Dates: start: 20150819
  8. VITAMIN D                          /00107901/ [Concomitant]
     Active Substance: ERGOCALCIFEROL
     Dosage: 50000 IU, 1/WEEK
     Route: 048
  9. SCOPOLAMINE                        /00008701/ [Suspect]
     Active Substance: SCOPOLAMINE
     Indication: NAUSEA
     Dosage: UNK
     Route: 061
     Dates: start: 20150929, end: 20150929

REACTIONS (33)
  - Dyskinesia [Unknown]
  - Somnolence [Unknown]
  - Mydriasis [Recovered/Resolved]
  - Dandruff [Unknown]
  - Abdominal pain [Recovered/Resolved]
  - Feeling cold [Unknown]
  - Thirst [Unknown]
  - Fatigue [Not Recovered/Not Resolved]
  - Nausea [Not Recovered/Not Resolved]
  - Pruritus generalised [Unknown]
  - Decreased appetite [Unknown]
  - Diarrhoea [Recovered/Resolved]
  - Dizziness [Recovered/Resolved]
  - Vision blurred [Recovered/Resolved]
  - Back pain [Recovered/Resolved]
  - Constipation [Recovered/Resolved]
  - Vomiting [Recovered/Resolved]
  - Joint swelling [Not Recovered/Not Resolved]
  - Alopecia [Unknown]
  - Pyrexia [Recovered/Resolved]
  - Heart rate increased [Unknown]
  - Insomnia [Unknown]
  - Dyskinesia [Unknown]
  - Peripheral swelling [Not Recovered/Not Resolved]
  - Oropharyngeal pain [Unknown]
  - Urticaria [Recovering/Resolving]
  - Headache [Unknown]
  - Muscle twitching [Unknown]
  - Pain in jaw [Unknown]
  - Chest pain [Recovered/Resolved]
  - Weight decreased [Unknown]
  - Rhinorrhoea [Unknown]
  - Neck pain [Recovered/Resolved]

NARRATIVE: CASE EVENT DATE: 20150918
